FAERS Safety Report 9083693 (Version 1)
Quarter: 2013Q1

REPORT INFORMATION
  Report Type: Report from Study
  Country: US (occurrence: US)
  Receive Date: 20130130
  Receipt Date: 20130130
  Transmission Date: 20140127
  Serious: No
  Sender: FDA-Public Use
  Company Number: US-ABBOTT-12P-163-0966582-00

PATIENT
  Age: 75 Year
  Sex: Male

DRUGS (5)
  1. HUMIRA 40 MG/0.8 ML PEN [Suspect]
     Indication: PSORIASIS
     Route: 058
     Dates: start: 20120702
  2. LIPITOR [Concomitant]
     Indication: BLOOD CHOLESTEROL
     Dosage: 40MG EVERY DAY
  3. DIOVAN [Concomitant]
     Indication: BLOOD PRESSURE
     Dosage: 160MG EVERY DAY
  4. IRON [Concomitant]
     Indication: PRODUCT USED FOR UNKNOWN INDICATION
     Dosage: 27MG DAILY
  5. CITALOPRAM [Concomitant]
     Indication: DEPRESSION
     Dosage: 40MG EVERY DAY

REACTIONS (1)
  - Back pain [Not Recovered/Not Resolved]
